FAERS Safety Report 8555010-X (Version None)
Quarter: 2012Q3

REPORT INFORMATION
  Report Type: 
  Country: None (occurrence: None)
  Receive Date: 20120731
  Receipt Date: 20101029
  Transmission Date: 20120928
  Serious: Yes (Hospitalization)
  Sender: FDA-Public Use
  Company Number: US-BAYER-201041065NA

PATIENT
  Age: 33 Year
  Sex: Female
  Weight: 114 kg

DRUGS (14)
  1. YASMIN [Suspect]
     Indication: CONTRACEPTION
     Dosage: UNK UNK, QD
     Route: 048
     Dates: start: 20030101, end: 20091001
  2. HYDROCHLOROTHIAZIDE [Concomitant]
     Dosage: 25 MG, QD
     Route: 048
     Dates: start: 20070914
  3. OXYCODONE HCL AND ACETAMINOPHEN [Concomitant]
  4. NAPROXEN [Concomitant]
     Dosage: 500 MG, UNK
     Dates: start: 20070405
  5. YASMIN [Suspect]
     Indication: MENSTRUAL DISORDER
  6. DROSPIRENONE AND ETHINYL ESTRADIOL [Suspect]
     Dosage: UNK
     Dates: start: 20030101, end: 20070101
  7. HYDROCHLOROTHIAZIDE [Concomitant]
     Dosage: 25 MG, QD
     Route: 048
     Dates: start: 20070913
  8. PROMETHAZINE [Concomitant]
     Indication: NAUSEA
     Route: 048
  9. OXYCODONE HCL AND ACETAMINOPHEN [Concomitant]
     Indication: PAIN
     Route: 048
  10. YASMIN [Suspect]
     Indication: MUSCLE SPASMS
     Dosage: UNK
     Dates: start: 20030101, end: 20070101
  11. IBUPROFEN [Concomitant]
     Route: 048
  12. ERRIN [Concomitant]
  13. HYDROCHLOROTHIAZIDE [Concomitant]
     Indication: HYPERTENSION
     Route: 048
     Dates: start: 19980101
  14. DROSPIRENONE AND ETHINYL ESTRADIOL [Suspect]
     Dosage: UNK
     Dates: start: 20080817

REACTIONS (2)
  - CHOLELITHIASIS [None]
  - CHOLECYSTITIS CHRONIC [None]
